FAERS Safety Report 13664121 (Version 1)
Quarter: 2017Q2

REPORT INFORMATION
  Report Type: Spontaneous
  Country: US (occurrence: US)
  Receive Date: 20170618
  Receipt Date: 20170618
  Transmission Date: 20170830
  Serious: Yes (Life-Threatening, Hospitalization, Disabling)
  Sender: FDA-Public Use
  Company Number: None

PATIENT
  Age: 33 Year
  Sex: Female
  Weight: 47.25 kg

DRUGS (3)
  1. KLONOPIN [Suspect]
     Active Substance: CLONAZEPAM
     Indication: POST-TRAUMATIC STRESS DISORDER
     Dosage: ?          QUANTITY:1 CAPSULE(S);?
     Route: 048
     Dates: start: 20021001, end: 20151101
  2. VALIUM [Suspect]
     Active Substance: DIAZEPAM
     Indication: DRUG WITHDRAWAL MAINTENANCE THERAPY
     Dosage: ?          QUANTITY:1 TABLET(S);?
     Route: 048
     Dates: start: 20151102
  3. KLONOPIN [Suspect]
     Active Substance: CLONAZEPAM
     Indication: GENERALISED ANXIETY DISORDER
     Dosage: ?          QUANTITY:1 CAPSULE(S);?
     Route: 048
     Dates: start: 20021001, end: 20151101

REACTIONS (31)
  - Back pain [None]
  - Depersonalisation/derealisation disorder [None]
  - Neuralgia [None]
  - Muscle spasms [None]
  - Paraesthesia [None]
  - Dyspnoea [None]
  - Asthenia [None]
  - Palpitations [None]
  - Weight fluctuation [None]
  - Headache [None]
  - Abdominal discomfort [None]
  - Body temperature fluctuation [None]
  - Insomnia [None]
  - Tremor [None]
  - Anxiety [None]
  - Depression [None]
  - Head discomfort [None]
  - Fatigue [None]
  - Dizziness [None]
  - Paranoia [None]
  - Confusional state [None]
  - Drug tolerance [None]
  - Myalgia [None]
  - Panic attack [None]
  - Vision blurred [None]
  - Impaired work ability [None]
  - Suicidal ideation [None]
  - Dyspepsia [None]
  - Cognitive disorder [None]
  - Arthralgia [None]
  - Akathisia [None]

NARRATIVE: CASE EVENT DATE: 20090630
